FAERS Safety Report 15121936 (Version 2)
Quarter: 2018Q3

REPORT INFORMATION
  Report Type: Spontaneous
  Country: TW (occurrence: TW)
  Receive Date: 20180709
  Receipt Date: 20180711
  Transmission Date: 20181010
  Serious: Yes (Hospitalization, Other)
  Sender: FDA-Public Use
  Company Number: TW-ALLERGAN-1834291US

PATIENT
  Age: 43 Year
  Sex: Male

DRUGS (2)
  1. MORPHINE SULFATE UNK [Suspect]
     Active Substance: MORPHINE SULFATE
     Indication: PAIN
     Dosage: 180 MG, UNK
     Route: 065
  2. MEPERIDINE [Suspect]
     Active Substance: MEPERIDINE
     Indication: PRODUCT USED FOR UNKNOWN INDICATION
     Dosage: 300 MG, UNK
     Route: 065

REACTIONS (9)
  - Restlessness [Recovered/Resolved]
  - Muscle spasms [Recovered/Resolved]
  - Bone pain [Recovered/Resolved]
  - Drug abuse [Unknown]
  - Drug tolerance [Recovered/Resolved]
  - Pain [Recovered/Resolved]
  - Off label use [Unknown]
  - Drug dose omission [Unknown]
  - Withdrawal syndrome [Recovered/Resolved]
